FAERS Safety Report 8415198-8 (Version None)
Quarter: 2012Q2

REPORT INFORMATION
  Report Type: 
  Country: None (occurrence: None)
  Receive Date: 20120606
  Receipt Date: 20120530
  Transmission Date: 20120825
  Serious: No
  Sender: FDA-Public Use
  Company Number: US-PFIZER INC-2012130893

PATIENT
  Sex: Female
  Weight: 104 kg

DRUGS (5)
  1. EFFEXOR XR [Suspect]
     Dosage: 37.5 MG, 1X/DAY
     Route: 048
     Dates: start: 20120501, end: 20120521
  2. VITAMIN D [Concomitant]
     Dosage: 50000 IU, WEEKLY
  3. EFFEXOR XR [Suspect]
     Indication: DEPRESSION
     Dosage: 75 MG, 1X/DAY
     Route: 048
     Dates: end: 20120501
  4. PRISTIQ [Suspect]
     Indication: DEPRESSION
     Dosage: 50 MG, 1X/DAY
     Route: 048
     Dates: start: 20120516
  5. PREVACID [Concomitant]
     Dosage: 30 MG, 1X/DAY

REACTIONS (5)
  - THINKING ABNORMAL [None]
  - FATIGUE [None]
  - DRUG INEFFECTIVE [None]
  - DEPRESSION [None]
  - HEADACHE [None]
